FAERS Safety Report 7671328-7 (Version None)
Quarter: 2011Q3

REPORT INFORMATION
  Report Type: 
  Country: None (occurrence: None)
  Receive Date: 20110809
  Receipt Date: 20110726
  Transmission Date: 20111222
  Serious: Yes (Hospitalization)
  Sender: FDA-Public Use
  Company Number: DE-CELGENEUS-062-21880-11072818

PATIENT
  Age: 59 Year
  Sex: Male
  Weight: 76 kg

DRUGS (11)
  1. NEBIVOLOL HCL [Concomitant]
     Dosage: 1/2
     Route: 065
  2. LEVOTHYROXINE SODIUM [Concomitant]
     Dosage: 150 MICROGRAM
     Route: 065
     Dates: start: 20090908
  3. NEBIVOLOL HCL [Concomitant]
     Dosage: 5 MILLIGRAM
     Route: 048
     Dates: start: 20110721
  4. LEVOTHYROXINE SODIUM [Concomitant]
     Route: 065
     Dates: end: 20090907
  5. REVLIMID [Suspect]
     Indication: MULTIPLE MYELOMA
     Dosage: 25 MILLIGRAM
     Route: 048
     Dates: start: 20110711
  6. TAMSULOSIN HCL [Concomitant]
     Dosage: .4 MILLIGRAM
     Route: 065
  7. NALOXONE [Concomitant]
     Dosage: 20/10
     Route: 065
  8. LEXOTANIL [Concomitant]
     Dosage: 1/2
     Route: 065
  9. NOVALGIN [Concomitant]
     Dosage: 500 MILLIGRAM
     Route: 065
  10. LEVOTHYROXINE SODIUM [Concomitant]
     Dosage: 125 MICROGRAM
     Route: 065
     Dates: start: 20110722
  11. TETHEXAL [Concomitant]
     Route: 065

REACTIONS (1)
  - RENAL COLIC [None]
